FAERS Safety Report 25393834 (Version 2)
Quarter: 2025Q3

REPORT INFORMATION
  Report Type: Spontaneous
  Country: EU (occurrence: EU)
  Receive Date: 20250604
  Receipt Date: 20250730
  Transmission Date: 20251020
  Serious: Yes (Death)
  Sender: ROCHE
  Company Number: EU-ROCHE-10000297824

PATIENT
  Sex: Female

DRUGS (1)
  1. MOSUNETUZUMAB [Suspect]
     Active Substance: MOSUNETUZUMAB
     Indication: Product used for unknown indication
     Route: 065

REACTIONS (3)
  - Blood fibrinogen decreased [Unknown]
  - Disease progression [Fatal]
  - Confusional state [Unknown]
